FAERS Safety Report 24834718 (Version 1)
Quarter: 2025Q1

REPORT INFORMATION
  Report Type: Spontaneous
  Country: GB (occurrence: None)
  Receive Date: 20250110
  Receipt Date: 20250110
  Transmission Date: 20250409
  Serious: Yes (Disabling, Other)
  Sender: FDA-CTU
  Company Number: None

PATIENT
  Age: 33 Year
  Sex: Male
  Weight: 81 kg

DRUGS (5)
  1. CITALOPRAM [Suspect]
     Active Substance: CITALOPRAM
     Indication: Stress
     Dosage: DAILY ORAL
     Route: 048
     Dates: start: 20230901, end: 20240801
  2. CITALOPRAM [Suspect]
     Active Substance: CITALOPRAM
     Indication: Anxiety
  3. CITALOPRAM [Suspect]
     Active Substance: CITALOPRAM
     Indication: Fatigue
  4. CITALOPRAM [Suspect]
     Active Substance: CITALOPRAM
  5. VITAMINS [Concomitant]
     Active Substance: VITAMINS

REACTIONS (35)
  - Withdrawal syndrome [None]
  - Tremor [None]
  - Asthenia [None]
  - Rash [None]
  - Panic reaction [None]
  - Anxiety [None]
  - Dizziness [None]
  - Penis disorder [None]
  - Genital hypoaesthesia [None]
  - Loss of libido [None]
  - Erectile dysfunction [None]
  - Erectile dysfunction [None]
  - Hypoaesthesia [None]
  - Dysuria [None]
  - Seizure [None]
  - Skin burning sensation [None]
  - Dry skin [None]
  - Pain of skin [None]
  - Hyperhidrosis [None]
  - Hyperhidrosis [None]
  - Hyperhidrosis [None]
  - Fear [None]
  - Depression [None]
  - Anxiety [None]
  - Akathisia [None]
  - Dry mouth [None]
  - Parosmia [None]
  - Fatigue [None]
  - Anorgasmia [None]
  - Gastrointestinal motility disorder [None]
  - Abnormal faeces [None]
  - Decreased appetite [None]
  - Emotional disorder [None]
  - Apathy [None]
  - Impaired work ability [None]

NARRATIVE: CASE EVENT DATE: 20240215
